FAERS Safety Report 8740290 (Version 2)
Quarter: 2012Q4

REPORT INFORMATION
  Report Type: 
  Country: JP (occurrence: JP)
  Receive Date: 20120823
  Receipt Date: 20120827
  Transmission Date: 20130627
  Serious: Yes (Life-Threatening, Hospitalization)
  Sender: FDA-Public Use
  Company Number: JP-ABBOTT-12P-087-0971250-00

PATIENT
  Age: 50 Year
  Sex: Female

DRUGS (7)
  1. LEUPLIN [Suspect]
     Indication: UTERINE LEIOMYOMA
     Route: 058
     Dates: start: 20120806
  2. FERRUM PHOSPHORICUM [Suspect]
     Indication: ANAEMIA
     Route: 048
     Dates: start: 20120718
  3. NAUZELIN [Concomitant]
     Indication: PROPHYLAXIS
     Route: 048
     Dates: start: 20120718
  4. NAUZELIN [Suspect]
     Indication: GASTROINTESTINAL DISORDER
  5. JUZENTAIHOTO [Concomitant]
     Indication: ANAEMIA
     Route: 048
     Dates: start: 20120720
  6. KEISHIBUKURYOGAN [Concomitant]
     Indication: UTERINE LEIOMYOMA
     Route: 048
     Dates: start: 20120720
  7. KEISHIBUKURYOGAN [Concomitant]
     Indication: CARDIOVASCULAR DISORDER

REACTIONS (1)
  - Thrombotic cerebral infarction [Recovering/Resolving]
